FAERS Safety Report 6271998-4 (Version None)
Quarter: 2009Q3

REPORT INFORMATION
  Report Type: 
  Country: None (occurrence: None)
  Receive Date: 20090717
  Receipt Date: 20090713
  Transmission Date: 20100115
  Serious: No
  Sender: FDA-Public Use
  Company Number: US-B.I. PHARMACEUTICALS,INC./RIDGEFIELD-2009-BP-08340BP

PATIENT
  Sex: Female

DRUGS (9)
  1. SPIRIVA [Suspect]
     Indication: MULTIPLE ALLERGIES
     Dosage: 18 MCG
     Route: 055
     Dates: start: 20080701, end: 20090701
  2. SPIRIVA [Suspect]
     Indication: NASAL CONGESTION
     Dosage: 36 MCG
     Route: 055
     Dates: start: 20090708
  3. NASACORT [Concomitant]
     Indication: MULTIPLE ALLERGIES
     Dates: start: 20080701
  4. SYMBICORT [Concomitant]
     Indication: MULTIPLE ALLERGIES
     Dates: start: 20080701
  5. SYNTHROID [Concomitant]
     Indication: HYPOTHYROIDISM
     Dosage: 0.1 MG
     Route: 048
  6. TIMOLOL MALEATE [Concomitant]
     Indication: GLAUCOMA
     Dates: start: 20000101
  7. FEXOFENADINE [Concomitant]
     Indication: MULTIPLE ALLERGIES
     Dosage: 180 MG
     Route: 048
  8. ASPIRIN [Concomitant]
     Indication: HYPERTENSION
  9. ASPIRIN [Concomitant]
     Indication: BLOOD DISORDER

REACTIONS (4)
  - COUGH [None]
  - DRY EYE [None]
  - EYE PAIN [None]
  - NASAL CONGESTION [None]
